FAERS Safety Report 14346113 (Version 1)
Quarter: 2018Q1

REPORT INFORMATION
  Report Type: Spontaneous
  Country: CN (occurrence: CN)
  Receive Date: 20180103
  Receipt Date: 20180103
  Transmission Date: 20180509
  Serious: Yes (Other)
  Sender: FDA-Public Use
  Company Number: CN-ARALEZ PHARMACEUTICALS R+D INC.-2017-ARA-002143

PATIENT
  Age: 50 Year
  Sex: Male

DRUGS (2)
  1. METOPROLOL SUCCINATE. [Suspect]
     Active Substance: METOPROLOL SUCCINATE
     Indication: PRODUCT USED FOR UNKNOWN INDICATION
     Dosage: 47.5 MG, QD
     Route: 048
  2. ORYZANOL [Concomitant]
     Active Substance: GAMMA ORYZANOL
     Indication: EXTRASYSTOLES
     Dosage: UNK
     Dates: start: 20170614

REACTIONS (2)
  - Erectile dysfunction [Unknown]
  - Priapism [Unknown]
